FAERS Safety Report 14549074 (Version 3)
Quarter: 2018Q2

REPORT INFORMATION
  Report Type: Spontaneous
  Country: US (occurrence: US)
  Receive Date: 20180219
  Receipt Date: 20180410
  Transmission Date: 20180711
  Serious: No
  Sender: FDA-Public Use
  Company Number: US-PFIZER INC-2018068891

PATIENT
  Age: 11 Year
  Sex: Male
  Weight: 45.35 kg

DRUGS (3)
  1. QUILLIVANT XR [Suspect]
     Active Substance: METHYLPHENIDATE HYDROCHLORIDE
     Indication: ATTENTION DEFICIT/HYPERACTIVITY DISORDER
     Dosage: 5 ML, UNK (5ML THROUGHOUT THE WEEK AND THEN ON THE WEEKEND, HE DID NOT TAKE ANY)
     Dates: start: 201801
  2. ASPIRIN. [Concomitant]
     Active Substance: ASPIRIN
     Indication: HEADACHE
     Dosage: UNK
  3. QUILLIVANT XR [Suspect]
     Active Substance: METHYLPHENIDATE HYDROCHLORIDE
     Dosage: UNK (5ML THROUGHOUT THE WEEK,3ML OR 4ML ON THE WEEKEND)
     Dates: start: 201801

REACTIONS (3)
  - Abdominal discomfort [Recovered/Resolved]
  - Headache [Recovered/Resolved]
  - Nausea [Recovered/Resolved]

NARRATIVE: CASE EVENT DATE: 201801
